FAERS Safety Report 7411072-4 (Version None)
Quarter: 2011Q2

REPORT INFORMATION
  Report Type: 
  Country: None (occurrence: None)
  Receive Date: 20110413
  Receipt Date: 20110405
  Transmission Date: 20111010
  Serious: Yes (Other)
  Sender: FDA-Public Use
  Company Number: US-ASTELLAS-2011US001437

PATIENT
  Age: 9 Year
  Sex: Male

DRUGS (8)
  1. PROGRAF [Suspect]
     Indication: LUNG TRANSPLANT
     Dosage: UNK
     Route: 065
  2. AMBISOME [Suspect]
     Dosage: UNK
     Route: 055
  3. VORICONAZOLE [Concomitant]
     Indication: FUNGAL INFECTION
     Dosage: UNK
     Route: 048
  4. AMBISOME [Suspect]
     Indication: FUNGAL INFECTION
     Dosage: UNK
     Route: 042
  5. CASPOFUNGIN [Concomitant]
     Indication: FUNGAL INFECTION
     Dosage: UNK
     Route: 042
  6. ANTIBIOTICS [Concomitant]
     Indication: ANTIBIOTIC THERAPY
     Dosage: UNK
     Route: 042
  7. CELLCEPT [Concomitant]
     Indication: LUNG TRANSPLANT
     Dosage: UNK
     Route: 065
  8. PREDNISONE [Concomitant]
     Indication: LUNG TRANSPLANT
     Dosage: UNK
     Route: 065

REACTIONS (3)
  - RENAL IMPAIRMENT [None]
  - FUNGAL INFECTION [None]
  - LUNG TRANSPLANT REJECTION [None]
